FAERS Safety Report 6585880-6 (Version None)
Quarter: 2010Q1

REPORT INFORMATION
  Report Type: 
  Country: None (occurrence: None)
  Receive Date: 20100217
  Receipt Date: 20100205
  Transmission Date: 20100710
  Serious: Yes (Hospitalization, Other)
  Sender: FDA-Public Use
  Company Number: PHHY2009JP48269

PATIENT
  Age: 71 Year
  Sex: Female

DRUGS (16)
  1. ZOMETA [Suspect]
     Indication: METASTASES TO BONE
     Dosage: 4MG PER ADMINISTRATION
     Route: 042
     Dates: start: 20070823, end: 20071017
  2. ZOMETA [Suspect]
     Dosage: UNK
  3. ALIMTA [Concomitant]
     Dosage: UNK
     Dates: start: 20090611
  4. FOLIC ACID [Concomitant]
  5. IRESSA [Concomitant]
     Indication: LUNG ADENOCARCINOMA
     Dosage: 250 MG, UNK
     Route: 048
     Dates: start: 20060516, end: 20080723
  6. CRESTOR [Concomitant]
     Indication: HYPERLIPIDAEMIA
     Dosage: 25 MG, UNK
     Route: 048
     Dates: start: 20070823, end: 20090401
  7. LOXONIN [Concomitant]
     Indication: BACK PAIN
     Dosage: UNK
     Route: 048
     Dates: start: 20080625
  8. MOBIC [Concomitant]
     Indication: BACK PAIN
     Dosage: 10 MG, UNK
     Route: 048
     Dates: start: 20080806, end: 20090109
  9. TOCOPHERYL NICOTINATE [Concomitant]
     Indication: HYPOVITAMINOSIS
     Dosage: 300 MG, UNK
     Route: 048
     Dates: start: 20080806, end: 20090109
  10. GASTER D [Concomitant]
     Indication: GASTRITIS
     Dosage: 20 MG, UNK
     Route: 048
     Dates: start: 20081024, end: 20090209
  11. NOVAMIN [Concomitant]
     Indication: NAUSEA
     Dosage: UNK
     Route: 048
     Dates: start: 20081031
  12. TARCEVA [Concomitant]
     Indication: LUNG ADENOCARCINOMA
     Dosage: 150 MG, UNK
     Route: 048
     Dates: start: 20090206, end: 20090601
  13. PROMAC [Concomitant]
     Indication: ZINC DEFICIENCY
     Dosage: 150 MG, UNK
     Route: 048
     Dates: start: 20090415
  14. TAXOL [Concomitant]
     Dosage: UNK
     Route: 042
     Dates: start: 20080807, end: 20090109
  15. MEIACT [Concomitant]
     Dosage: 600 MG, UNK
     Route: 048
     Dates: start: 20091016
  16. TAXOTERE [Concomitant]
     Dosage: UNK
     Dates: start: 20080807, end: 20090109

REACTIONS (14)
  - BONE DISORDER [None]
  - CARCINOEMBRYONIC ANTIGEN INCREASED [None]
  - CONCOMITANT DISEASE AGGRAVATED [None]
  - DENTAL DISCOMFORT [None]
  - DISCOMFORT [None]
  - GASTROINTESTINAL DISORDER [None]
  - JAW DISORDER [None]
  - LOOSE TOOTH [None]
  - METASTASES TO CENTRAL NERVOUS SYSTEM [None]
  - OSTEOMYELITIS [None]
  - PYREXIA [None]
  - SKIN DISORDER [None]
  - TOOTH EXTRACTION [None]
  - TOOTHACHE [None]
